FAERS Safety Report 6197048-6 (Version None)
Quarter: 2009Q2

REPORT INFORMATION
  Report Type: 
  Country: None (occurrence: None)
  Receive Date: 20090518
  Receipt Date: 20090518
  Transmission Date: 20091009
  Serious: Yes (Hospitalization)
  Sender: FDA-Public Use
  Company Number: None

PATIENT
  Age: 88 Year
  Sex: Male
  Weight: 55.9 kg

DRUGS (2)
  1. WARFARIN SODIUM [Suspect]
     Indication: CARDIOVASCULAR DISORDER
     Dosage: 4 MG AT BEDTIME PO
     Route: 048
     Dates: start: 20010705
  2. WARFARIN SODIUM [Suspect]
     Indication: SURGERY
     Dosage: 4 MG AT BEDTIME PO
     Route: 048
     Dates: start: 20010705

REACTIONS (3)
  - FALL [None]
  - INTERNATIONAL NORMALISED RATIO INCREASED [None]
  - SUBDURAL HAEMATOMA [None]
